FAERS Safety Report 9817732 (Version 1)
Quarter: 2014Q1

REPORT INFORMATION
  Report Type: Spontaneous
  Country: CA (occurrence: CA)
  Receive Date: 20140115
  Receipt Date: 20140115
  Transmission Date: 20141002
  Serious: Yes (Disabling)
  Sender: FDA-Public Use
  Company Number: CA-ASTRAZENECA-2014SE01292

PATIENT
  Age: 81 Year
  Sex: Male
  Weight: 113 kg

DRUGS (2)
  1. CRESTOR [Suspect]
     Route: 048
  2. ALLOPURINOL [Concomitant]

REACTIONS (3)
  - Activities of daily living impaired [Unknown]
  - Somnolence [Unknown]
  - Amnesia [Unknown]
